FAERS Safety Report 7867737-3 (Version None)
Quarter: 2011Q4

REPORT INFORMATION
  Report Type: 
  Country: None (occurrence: None)
  Receive Date: 20111028
  Receipt Date: 20111020
  Transmission Date: 20120403
  Serious: Yes (Hospitalization, Other)
  Sender: FDA-Public Use
  Company Number: PHEH2011US07436

PATIENT
  Age: 29 Year
  Sex: Female
  Weight: 45.805 kg

DRUGS (3)
  1. TOBI [Suspect]
     Indication: CYSTIC FIBROSIS
     Dosage: 300 MG, BID, IN A CYCLE OF 28 DAYS ON AND 28 DAYS OFF
     Dates: start: 20100413
  2. TOBI [Suspect]
     Route: 042
  3. PULMOZYME [Concomitant]

REACTIONS (2)
  - LUNG INFECTION [None]
  - PNEUMONIA [None]
